FAERS Safety Report 5852903-9 (Version None)
Quarter: 2008Q3

REPORT INFORMATION
  Report Type: 
  Country: None (occurrence: None)
  Receive Date: 20080821
  Receipt Date: 20080809
  Transmission Date: 20090109
  Serious: Yes (Other)
  Sender: FDA-Public Use
  Company Number: PHEH2008US06998

PATIENT

DRUGS (4)
  1. RECLAST [Suspect]
  2. PREDNISONE TAB [Suspect]
  3. VITAMIN D [Suspect]
  4. CALCIUM [Suspect]

REACTIONS (8)
  - ASTHENIA [None]
  - CHONDROCALCINOSIS [None]
  - FEELING HOT [None]
  - HYPOTHYROIDISM [None]
  - MUSCLE SPASMS [None]
  - NEUROMYOPATHY [None]
  - OSTEOARTHRITIS [None]
  - OSTEOPOROSIS [None]
